FAERS Safety Report 14054654 (Version 1)
Quarter: 2017Q4

REPORT INFORMATION
  Report Type: Spontaneous
  Country: US (occurrence: None)
  Receive Date: 20171006
  Receipt Date: 20171006
  Transmission Date: 20180321
  Serious: Yes (Hospitalization)
  Sender: FDA-Public Use
  Company Number: None

PATIENT
  Age: 61 Year
  Sex: Female
  Weight: 110.1 kg

DRUGS (1)
  1. MEMANTINE HYDROCHLORIDE. [Suspect]
     Active Substance: MEMANTINE HYDROCHLORIDE
     Dates: end: 20170909

REACTIONS (6)
  - Nausea [None]
  - Hypotension [None]
  - Decreased appetite [None]
  - Malaise [None]
  - Confusional state [None]
  - Oedema [None]

NARRATIVE: CASE EVENT DATE: 20170910
